FAERS Safety Report 6551997-5 (Version None)
Quarter: 2010Q1

REPORT INFORMATION
  Report Type: 
  Country: None (occurrence: None)
  Receive Date: 20100126
  Receipt Date: 20100120
  Transmission Date: 20100710
  Serious: Yes (Other)
  Sender: FDA-Public Use
  Company Number: US-ABBOTT-09P-163-0587973-00

PATIENT
  Age: 31 Year
  Sex: Female

DRUGS (4)
  1. NORVIR [Suspect]
     Indication: ANTIVIRAL PROPHYLAXIS
     Dosage: 100 MG DAILY
     Route: 048
     Dates: start: 20071101
  2. VIREAD [Suspect]
     Indication: ANTIVIRAL PROPHYLAXIS
     Dosage: 300 MG DAILY
     Route: 048
     Dates: start: 20071101
  3. REYATAZ [Suspect]
     Indication: ANTIVIRAL PROPHYLAXIS
     Dosage: 300 MG DAILY
     Route: 048
     Dates: start: 20071101
  4. EPZICOM [Suspect]
     Indication: ANTIVIRAL PROPHYLAXIS
     Route: 048
     Dates: start: 20071101

REACTIONS (3)
  - ABORTION INDUCED [None]
  - ABORTION INFECTED [None]
  - PREMATURE RUPTURE OF MEMBRANES [None]
